FAERS Safety Report 5468214-X (Version None)
Quarter: 2007Q3

REPORT INFORMATION
  Report Type: 
  Country: None (occurrence: None)
  Receive Date: 20070926
  Receipt Date: 20070918
  Transmission Date: 20080115
  Serious: Yes (Other)
  Sender: FDA-Public Use
  Company Number: FR-ASTRAZENECA-2007CG01329

PATIENT
  Age: 68 Year
  Sex: Male

DRUGS (3)
  1. INEXIUM [Suspect]
     Indication: PERNICIOUS ANAEMIA
     Route: 048
     Dates: start: 20050101
  2. LIPANTHYL [Concomitant]
  3. VITAMINE B12 [Concomitant]

REACTIONS (1)
  - PURPURA [None]
